FAERS Safety Report 7334922-9 (Version None)
Quarter: 2011Q1

REPORT INFORMATION
  Report Type: 
  Country: None (occurrence: None)
  Receive Date: 20110228
  Receipt Date: 20100122
  Transmission Date: 20110831
  Serious: Yes (Hospitalization)
  Sender: FDA-Public Use
  Company Number: US-001427

PATIENT
  Sex: Male
  Weight: 74.8435 kg

DRUGS (4)
  1. CHORIONIC GONADOTROPIN [Suspect]
     Dosage: (2000 IU 3X/WEEK INTRAMUSCULAR), (2000 IU 3X/WEEK INTRAMUSCULAR)
     Route: 030
     Dates: start: 20090701
  2. CHORIONIC GONADOTROPIN [Suspect]
     Dosage: (2000 IU 3X/WEEK INTRAMUSCULAR), (2000 IU 3X/WEEK INTRAMUSCULAR)
     Route: 030
     Dates: start: 20070301, end: 20081201
  3. REPRONEX [Suspect]
     Dosage: (75 IU 3X/WEEK INTRAMUSCULAR), (75 IU 3X/WEEK INTRAMUSCULAR)
     Route: 030
     Dates: start: 20090701
  4. REPRONEX [Suspect]
     Dosage: (75 IU 3X/WEEK INTRAMUSCULAR), (75 IU 3X/WEEK INTRAMUSCULAR)
     Route: 030
     Dates: start: 20070301, end: 20081201

REACTIONS (4)
  - NAUSEA [None]
  - DYSPNOEA [None]
  - DIZZINESS [None]
  - PALPITATIONS [None]
